FAERS Safety Report 19151787 (Version 2)
Quarter: 2021Q2

REPORT INFORMATION
  Report Type: Report from Study
  Country: None (occurrence: CO)
  Receive Date: 20210419
  Receipt Date: 20210610
  Transmission Date: 20210717
  Serious: Yes (Hospitalization, Other)
  Sender: FDA-Public Use
  Company Number: CO-ABBVIE-21K-036-3864922-00

PATIENT
  Age: 80 Year
  Sex: Male
  Weight: 60 kg

DRUGS (1)
  1. IMBRUVICA [Suspect]
     Active Substance: IBRUTINIB
     Indication: CHRONIC LYMPHOCYTIC LEUKAEMIA
     Route: 048
     Dates: start: 20210116, end: 20210319

REACTIONS (3)
  - COVID-19 pneumonia [Not Recovered/Not Resolved]
  - Urinary incontinence [Not Recovered/Not Resolved]
  - Syncope [Not Recovered/Not Resolved]

NARRATIVE: CASE EVENT DATE: 20210410
